FAERS Safety Report 21168210 (Version 6)
Quarter: 2023Q2

REPORT INFORMATION
  Report Type: Spontaneous
  Country: JP (occurrence: JP)
  Receive Date: 20220803
  Receipt Date: 20230406
  Transmission Date: 20230722
  Serious: Yes (Death)
  Sender: FDA-Public Use
  Company Number: JP-Eisai-202205402_LEN_P_1

PATIENT
  Sex: Male
  Weight: 44 kg

DRUGS (4)
  1. LENVIMA [Suspect]
     Active Substance: LENVATINIB
     Indication: Thyroid cancer
     Route: 048
     Dates: start: 20201010
  2. LENVIMA [Suspect]
     Active Substance: LENVATINIB
     Route: 048
  3. LENVIMA [Suspect]
     Active Substance: LENVATINIB
     Route: 048
     Dates: end: 20220513
  4. LENVIMA [Suspect]
     Active Substance: LENVATINIB
     Dosage: 4 DAYS ON/3 DAYS OFF
     Route: 048
     Dates: start: 20220514, end: 20220824

REACTIONS (2)
  - Malignant neoplasm progression [Fatal]
  - Fall [Unknown]

NARRATIVE: CASE EVENT DATE: 20220801
